FAERS Safety Report 14760170 (Version 1)
Quarter: 2018Q2

REPORT INFORMATION
  Report Type: Spontaneous
  Country: US (occurrence: US)
  Receive Date: 20180413
  Receipt Date: 20180413
  Transmission Date: 20180711
  Serious: No
  Sender: FDA-Public Use
  Company Number: US-009507513-1803USA010098

PATIENT
  Age: 23 Year
  Sex: Female

DRUGS (2)
  1. NEXPLANON [Suspect]
     Active Substance: ETONOGESTREL
     Dosage: 1 ROD, UNK
     Route: 059
     Dates: start: 20171117
  2. RU-486 [Suspect]
     Active Substance: MIFEPRISTONE
     Indication: ABORTION
     Dosage: UNK
     Route: 048
     Dates: start: 20171117

REACTIONS (4)
  - Abdominal pain [Not Recovered/Not Resolved]
  - Maternal exposure during pregnancy [Unknown]
  - Vomiting [Not Recovered/Not Resolved]
  - Nausea [Not Recovered/Not Resolved]

NARRATIVE: CASE EVENT DATE: 20171117
